FAERS Safety Report 21886770 (Version 7)
Quarter: 2024Q4

REPORT INFORMATION
  Report Type: Spontaneous
  Country: JP (occurrence: JP)
  Receive Date: 20230119
  Receipt Date: 20241025
  Transmission Date: 20250114
  Serious: Yes (Death, Life-Threatening, Hospitalization, Other)
  Sender: ALEXION PHARMACEUTICALS
  Company Number: 2023A009504

PATIENT
  Age: 61 Year
  Weight: 67 kg

DRUGS (20)
  1. TAGRISSO [Suspect]
     Active Substance: OSIMERTINIB
     Indication: Non-small cell lung cancer
     Dosage: 80 MILLIGRAM, QD
  2. TAGRISSO [Suspect]
     Active Substance: OSIMERTINIB
     Indication: Lung adenocarcinoma stage IV
     Dosage: 80 MILLIGRAM, QD
  3. NEXIUM [Suspect]
     Active Substance: ESOMEPRAZOLE MAGNESIUM
     Indication: Gastrooesophageal reflux disease
     Dosage: 20 MILLIGRAM, QD
  4. IRESSA [Suspect]
     Active Substance: GEFITINIB
     Dosage: 250 MILLIGRAM, QD
  5. CARBOPLATIN [Suspect]
     Active Substance: CARBOPLATIN
     Indication: Gastrooesophageal reflux disease
     Dosage: AUC 5, 505 MG - 500 MG
  6. CARBOPLATIN [Suspect]
     Active Substance: CARBOPLATIN
     Dosage: AUC 5, 505 MG - 500 MG
  7. CARBOPLATIN [Suspect]
     Active Substance: CARBOPLATIN
     Dosage: AUC 5, 489 MG - 480 MG
  8. PACLITAXEL [Suspect]
     Active Substance: PACLITAXEL
     Indication: Gastrooesophageal reflux disease
     Dosage: 100 MG/M2, 175 MG - 170 MG
  9. PACLITAXEL [Suspect]
     Active Substance: PACLITAXEL
     Dosage: 100 MG/M2, 175 MG - 170 MG
  10. PACLITAXEL [Suspect]
     Active Substance: PACLITAXEL
     Dosage: 75 MG/M2, 130.3 MG - 130 MG
  11. VALSARTAN [Concomitant]
     Active Substance: VALSARTAN
     Indication: Hypertension
     Dosage: 80 MILLIGRAM, QD
  12. AMLODIPINE [Concomitant]
     Active Substance: AMLODIPINE BESYLATE
     Indication: Hypertension
     Dosage: 5 MILLIGRAM, QD
  13. LOXOPROFEN [Concomitant]
     Active Substance: LOXOPROFEN
     Indication: Non-small cell lung cancer
     Dosage: 60 MILLIGRAM, TID
  14. NOVAMIN [Concomitant]
     Dosage: 5 MILLIGRAM, TID
  15. CALCIUM CARBONATE\CHOLECALCIFEROL\MAGNESIUM CARBONATE [Concomitant]
     Active Substance: CALCIUM CARBONATE\CHOLECALCIFEROL\MAGNESIUM CARBONATE
     Dosage: 2 DOSAGE FORM, QD
  16. SYMPROIC [Concomitant]
     Active Substance: NALDEMEDINE
     Dosage: .2 MILLIGRAM, QD
  17. MAGNESIUM OXIDE [Concomitant]
     Active Substance: MAGNESIUM OXIDE
     Dosage: 330 MILLIGRAM, TID
  18. OXYCODONE [Concomitant]
     Active Substance: OXYCODONE
     Dosage: 10 MILLIGRAM, BID
  19. DENOSUMAB [Concomitant]
     Active Substance: DENOSUMAB
  20. DENOSUMAB [Concomitant]
     Active Substance: DENOSUMAB

REACTIONS (9)
  - Coagulation factor deficiency [Recovering/Resolving]
  - Pericarditis malignant [Recovering/Resolving]
  - Cardiac tamponade [Recovering/Resolving]
  - Paronychia [Recovering/Resolving]
  - Tinea pedis [Recovering/Resolving]
  - Hepatic function abnormal [Fatal]
  - Diverticulum intestinal haemorrhagic [Recovered/Resolved]
  - Iron deficiency anaemia [Unknown]
  - Granulocytopenia [Not Recovered/Not Resolved]
